FAERS Safety Report 13182894 (Version 3)
Quarter: 2017Q1

REPORT INFORMATION
  Report Type: Spontaneous
  Country: JP (occurrence: JP)
  Receive Date: 20170203
  Receipt Date: 20170224
  Transmission Date: 20170428
  Serious: Yes (Life-Threatening, Disabling, Other)
  Sender: FDA-Public Use
  Company Number: JP-PFIZER INC-2017047976

PATIENT
  Age: 51 Year
  Sex: Female
  Weight: 47.9 kg

DRUGS (14)
  1. XYLOCAINE [Concomitant]
     Active Substance: LIDOCAINE HYDROCHLORIDE
     Indication: SEDATION
  2. ISOZOL [Concomitant]
     Active Substance: THIAMYLAL SODIUM
     Indication: ANALGESIC THERAPY
     Dosage: 15 ML (5 IN 1 DAY)
     Route: 042
     Dates: start: 20161013, end: 20161013
  3. PROTERNOL-L [Concomitant]
     Indication: INVESTIGATION
     Dosage: 20 ML, 2X/DAY
     Route: 042
     Dates: start: 20161013, end: 20161013
  4. PRECEDEX [Suspect]
     Active Substance: DEXMEDETOMIDINE HYDROCHLORIDE
     Indication: ANALGESIC THERAPY
     Dosage: 15 ML/HR (1 IN 1 DAY)
     Route: 042
     Dates: start: 20161013, end: 20161013
  5. ISOZOL [Concomitant]
     Active Substance: THIAMYLAL SODIUM
     Indication: SEDATION
  6. PRAZAXA [Concomitant]
     Active Substance: DABIGATRAN ETEXILATE MESYLATE
     Indication: ATRIAL FIBRILLATION
     Dosage: 300 MG (2 IN 1 DAY)
     Route: 048
     Dates: start: 20160805, end: 20161012
  7. HEPARIN SODIUM. [Concomitant]
     Active Substance: HEPARIN SODIUM
     Indication: PROPHYLAXIS
     Dosage: 4000 UNITS (2 IN 1 DAY)
     Route: 042
     Dates: start: 20161013, end: 20161013
  8. SOSEGON [Concomitant]
     Active Substance: PENTAZOCINE
     Indication: ANALGESIC THERAPY
     Dosage: 15 MG (1 IN 1 DAY)
     Route: 042
     Dates: start: 20161013, end: 20161013
  9. PRECEDEX [Suspect]
     Active Substance: DEXMEDETOMIDINE HYDROCHLORIDE
     Indication: SEDATION
  10. SOSEGON [Concomitant]
     Active Substance: PENTAZOCINE
     Indication: SEDATION
  11. ATARAX-P [Concomitant]
     Active Substance: HYDROXYZINE HYDROCHLORIDE
     Indication: SEDATION
  12. NEXIUM [Concomitant]
     Active Substance: ESOMEPRAZOLE MAGNESIUM
     Indication: PROPHYLAXIS
     Dosage: 20 MG (1 IN 1 DAY)
     Route: 048
     Dates: start: 20160916, end: 20161012
  13. ATARAX-P [Concomitant]
     Active Substance: HYDROXYZINE HYDROCHLORIDE
     Indication: ANALGESIC THERAPY
     Dosage: 25 MG (1 IN 1 DAY)
     Route: 042
     Dates: start: 20161013, end: 20161013
  14. XYLOCAINE [Concomitant]
     Active Substance: LIDOCAINE HYDROCHLORIDE
     Indication: ANALGESIC THERAPY
     Dosage: 20 ML (2 IN 1 DAY)
     Route: 058
     Dates: start: 20161013, end: 20161013

REACTIONS (3)
  - Shock [Recovering/Resolving]
  - Pancreatitis acute [Recovering/Resolving]
  - Liver disorder [Unknown]

NARRATIVE: CASE EVENT DATE: 20161013
